FAERS Safety Report 8508553-9 (Version None)
Quarter: 2012Q3

REPORT INFORMATION
  Report Type: 
  Country: None (occurrence: None)
  Receive Date: 20120713
  Receipt Date: 20120112
  Transmission Date: 20120928
  Serious: Yes (Other)
  Sender: FDA-Public Use
  Company Number: US-BAYER-2012-004197

PATIENT
  Sex: Male

DRUGS (2)
  1. MAGNEVIST [Suspect]
  2. MAGNEVIST [Suspect]
     Indication: HAEMOCHROMATOSIS
     Dosage: 20 ML, ONCE
     Dates: start: 20120107, end: 20120107

REACTIONS (3)
  - RASH MACULAR [None]
  - OEDEMA PERIPHERAL [None]
  - RASH PRURITIC [None]
